FAERS Safety Report 10234336 (Version 3)
Quarter: 2014Q3

REPORT INFORMATION
  Report Type: Spontaneous
  Country: US (occurrence: US)
  Receive Date: 20140612
  Receipt Date: 20140721
  Transmission Date: 20150326
  Serious: Yes (Death, Hospitalization)
  Sender: FDA-Public Use
  Company Number: US-ACTELION-A-NJ2014-100283

PATIENT
  Age: 70 Year
  Sex: Female

DRUGS (1)
  1. OPSUMIT [Suspect]
     Active Substance: MACITENTAN
     Indication: PRODUCT USED FOR UNKNOWN INDICATION
     Dosage: 10 MG, QD
     Route: 048
     Dates: start: 20140205, end: 20140602

REACTIONS (6)
  - Myocardial infarction [Unknown]
  - Pulmonary arterial hypertension [Fatal]
  - Disease progression [Fatal]
  - Hypoxia [Fatal]
  - Pulmonary fibrosis [Fatal]
  - Loss of control of legs [Unknown]

NARRATIVE: CASE EVENT DATE: 20140519
